FAERS Safety Report 15363019 (Version 3)
Quarter: 2018Q4

REPORT INFORMATION
  Report Type: Spontaneous
  Country: JP (occurrence: JP)
  Receive Date: 20180907
  Receipt Date: 20181227
  Transmission Date: 20190204
  Serious: Yes (Death, Hospitalization, Other)
  Sender: FDA-Public Use
  Company Number: JP-BRISTOL-MYERS SQUIBB COMPANY-BMS-2018-080857

PATIENT
  Age: 84 Year
  Sex: Female

DRUGS (1)
  1. YERVOY [Suspect]
     Active Substance: IPILIMUMAB
     Indication: GASTROINTESTINAL MELANOMA
     Dosage: UNK
     Route: 065

REACTIONS (2)
  - Immune thrombocytopenic purpura [Unknown]
  - Malignant neoplasm progression [Fatal]
